FAERS Safety Report 9458317 (Version 1)
Quarter: 2013Q3

REPORT INFORMATION
  Report Type: Spontaneous
  Country: US (occurrence: US)
  Receive Date: 20130814
  Receipt Date: 20130814
  Transmission Date: 20140515
  Serious: Yes (Other)
  Sender: FDA-Public Use
  Company Number: US-ELI_LILLY_AND_COMPANY-US201308003280

PATIENT
  Age: 61 Year
  Sex: Male

DRUGS (1)
  1. INSULIN HUMAN [Suspect]
     Route: 058

REACTIONS (4)
  - Eye haemorrhage [Unknown]
  - Blood glucose decreased [Unknown]
  - Gastroenteritis viral [Unknown]
  - Wrong technique in drug usage process [Unknown]
